FAERS Safety Report 23773390 (Version 1)
Quarter: 2024Q2

REPORT INFORMATION
  Report Type: Spontaneous
  Country: US (occurrence: None)
  Receive Date: 20240422
  Receipt Date: 20240422
  Transmission Date: 20240716
  Serious: Yes (Death)
  Sender: FDA-Public Use
  Company Number: None

PATIENT
  Sex: Male

DRUGS (1)
  1. PRALUENT [Suspect]
     Active Substance: ALIROCUMAB
     Indication: Hypercholesterolaemia
     Dosage: 75/1 MG/ML Q 2 WEEKS SUBCUTANEOUS?
     Route: 058
     Dates: start: 20191220, end: 20240212

REACTIONS (2)
  - Brain neoplasm [None]
  - Dementia [None]

NARRATIVE: CASE EVENT DATE: 20240214
